FAERS Safety Report 8597865-9 (Version None)
Quarter: 2012Q3

REPORT INFORMATION
  Report Type: 
  Country: None (occurrence: None)
  Receive Date: 20120816
  Receipt Date: 20120814
  Transmission Date: 20120928
  Serious: Yes (Hospitalization)
  Sender: FDA-Public Use
  Company Number: PHHY2012FR070238

PATIENT
  Age: 59 Year
  Sex: Female

DRUGS (4)
  1. IMATINIB MESYLATE [Suspect]
     Indication: CHRONIC MYELOID LEUKAEMIA
     Dosage: UNK UKN, UNK
     Route: 065
     Dates: start: 20050201, end: 20060101
  2. SPRYCEL [Suspect]
     Dosage: 100 MG, DAILY
     Route: 065
     Dates: start: 20070201, end: 20101001
  3. SPRYCEL [Suspect]
     Dosage: UNK UKN, UNK
     Route: 065
     Dates: start: 20120201, end: 20120701
  4. INTERFERON [Concomitant]
     Dosage: UNK UKN, UNK
     Route: 065
     Dates: end: 20070101

REACTIONS (4)
  - HEPATIC CIRRHOSIS [None]
  - DRUG INTOLERANCE [None]
  - ASCITES [None]
  - DIARRHOEA [None]
